FAERS Safety Report 5470335-2 (Version None)
Quarter: 2007Q3

REPORT INFORMATION
  Report Type: 
  Country: None (occurrence: None)
  Receive Date: 20070925
  Receipt Date: 20070911
  Transmission Date: 20080115
  Serious: Yes (Death)
  Sender: FDA-Public Use
  Company Number: 2007S1000364

PATIENT
  Age: 69 Year
  Sex: Male

DRUGS (11)
  1. CUBICIN [Suspect]
     Indication: STAPHYLOCOCCAL INFECTION
     Dosage: 350 MG;Q24H;IV
     Route: 042
     Dates: start: 20070910, end: 20070910
  2. AMIODARONE [Concomitant]
  3. NADROPARIN [Concomitant]
  4. SODIUM BICARBONATE [Concomitant]
  5. SODIUM CHLORIDE [Concomitant]
  6. PANTOPRAZOLE SODIUM [Concomitant]
  7. FUROSEMIDE [Concomitant]
  8. KABIVEN [Concomitant]
  9. GLUCOSE [Concomitant]
  10. CALEOPOLD [Concomitant]
  11. VANCOMYCIN [Concomitant]

REACTIONS (1)
  - STAPHYLOCOCCAL SEPSIS [None]
